FAERS Safety Report 5951296-6 (Version None)
Quarter: 2008Q4

REPORT INFORMATION
  Report Type: 
  Country: None (occurrence: None)
  Receive Date: 20081113
  Receipt Date: 20081029
  Transmission Date: 20090506
  Serious: Yes (Hospitalization)
  Sender: FDA-Public Use
  Company Number: US-BAYER-200837222NA

PATIENT
  Age: 17 Year
  Sex: Female

DRUGS (21)
  1. CIPRO [Suspect]
     Indication: LUNG DISORDER
     Dosage: TOTAL DAILY DOSE: 1000 MG  UNIT DOSE: 500 MG
     Route: 048
     Dates: start: 20080904, end: 20080917
  2. AZTREONAM LYSINE [Concomitant]
     Indication: LUNG INFECTION
     Route: 055
     Dates: start: 20080916, end: 20080917
  3. AZTREONAM LYSINE [Concomitant]
     Route: 055
     Dates: start: 20080108, end: 20080109
  4. AZTREONAM LYSINE [Concomitant]
     Route: 055
     Dates: start: 20080715, end: 20080829
  5. MOTRIN [Concomitant]
  6. VORICONAZOLE [Concomitant]
     Dosage: TOTAL DAILY DOSE: 400 MG  UNIT DOSE: 200 MG
     Route: 048
     Dates: start: 20080111, end: 20080917
  7. PREVACID [Concomitant]
  8. TYLENOL [Concomitant]
  9. ULTRASE MT20 [Concomitant]
  10. ZYRTEC [Concomitant]
  11. NOVOLOG [Concomitant]
  12. PREDNISONE TAB [Concomitant]
  13. PULMICORT-100 [Concomitant]
  14. NASONEX [Concomitant]
  15. SODIUM CHLORIDE [Concomitant]
  16. PREMARIN [Concomitant]
  17. FLOVENT [Concomitant]
  18. ZITHROMAX [Concomitant]
  19. PULKOZYME [Concomitant]
  20. ALBUTEROL [Concomitant]
  21. ADERS MULTIVITAMIN [Concomitant]

REACTIONS (1)
  - RENAL FAILURE ACUTE [None]
